FAERS Safety Report 5038397-4 (Version None)
Quarter: 2006Q2

REPORT INFORMATION
  Report Type: 
  Country: None (occurrence: None)
  Receive Date: 20060629
  Receipt Date: 20060619
  Transmission Date: 20061013
  Serious: Yes (Hospitalization)
  Sender: FDA-Public Use
  Company Number: PHFR2006GB02046

PATIENT
  Age: 31 Year
  Sex: Male

DRUGS (4)
  1. CLOZARIL [Suspect]
     Indication: SCHIZOPHRENIA
     Dosage: UNK, UNK
     Route: 048
     Dates: start: 20060511
  2. ANALGESICS [Concomitant]
     Route: 065
  3. METHADONE HCL [Concomitant]
     Route: 065
  4. LAXATIVES [Concomitant]
     Indication: CONSTIPATION
     Route: 065

REACTIONS (3)
  - CONSTIPATION [None]
  - LARGE INTESTINE PERFORATION [None]
  - SURGERY [None]
